FAERS Safety Report 13651102 (Version 2)
Quarter: 2017Q2

REPORT INFORMATION
  Report Type: Report from Study
  Country: FR (occurrence: FR)
  Receive Date: 20170614
  Receipt Date: 20170615
  Transmission Date: 20170830
  Serious: Yes (Other)
  Sender: FDA-Public Use
  Company Number: FR-PFIZER INC-2017252764

PATIENT
  Age: 44 Year
  Sex: Male

DRUGS (5)
  1. PARACETAMOL/CODEINE [Suspect]
     Active Substance: ACETAMINOPHEN\CODEINE PHOSPHATE
     Dosage: UNK, DAILY (24 TABLETS/DAY)
  2. PREGABALIN. [Suspect]
     Active Substance: PREGABALIN
     Dosage: UNK, DAILY (18 CAPSULE/DAY)
  3. ALPRAZOLAM. [Suspect]
     Active Substance: ALPRAZOLAM
     Dosage: UNK, DAILY(12 TABLETS/DAY)
  4. ZOLPIDEM [Suspect]
     Active Substance: ZOLPIDEM\ZOLPIDEM TARTRATE
     Dosage: UNK, DAILY (30 TABLETS/DAY)
  5. TETRAZEPAM [Suspect]
     Active Substance: TETRAZEPAM
     Dosage: UNK, DAILY (18 TABLETS/DAY)

REACTIONS (3)
  - Drug use disorder [Unknown]
  - Dependence [Unknown]
  - Deafness [Unknown]

NARRATIVE: CASE EVENT DATE: 2012
